FAERS Safety Report 5267324-X (Version None)
Quarter: 2007Q1

REPORT INFORMATION
  Report Type: 
  Country: None (occurrence: None)
  Receive Date: 20070316
  Receipt Date: 20070308
  Transmission Date: 20070707
  Serious: Yes (Hospitalization, Disabling)
  Sender: FDA-Public Use
  Company Number: ID-ROCHE-486690

PATIENT
  Age: 42 Year
  Weight: 80 kg

DRUGS (4)
  1. PEGASYS [Suspect]
     Indication: HEPATITIS B
     Dosage: A TOTAL OF 60 SHOTS HAS BEEN GIVEN. EXTENDED TREATMENT.
     Route: 058
     Dates: start: 20050615, end: 20070302
  2. LIPIDS [Concomitant]
     Dosage: ESSENTIAL LIPIDS (HEPATOTROPIC REGIMENTS).
     Dates: start: 20070302
  3. VITAMIN B COMPLEX CAP [Concomitant]
     Dosage: HIGH DOSE.
     Dates: start: 20070302
  4. AMINOFUSIN HEPAR [Concomitant]
     Dosage: BRANCHED CHAIN AMINO ACID.
     Dates: start: 20070302

REACTIONS (3)
  - ALANINE AMINOTRANSFERASE INCREASED [None]
  - HYPERBILIRUBINAEMIA [None]
  - JAUNDICE [None]
